FAERS Safety Report 13476000 (Version 3)
Quarter: 2018Q1

REPORT INFORMATION
  Report Type: Report from Study
  Country: US (occurrence: US)
  Receive Date: 20170424
  Receipt Date: 20180115
  Transmission Date: 20180508
  Serious: No
  Sender: FDA-Public Use
  Company Number: US-AMGEN-USASL2017014521

PATIENT
  Age: 84 Year
  Sex: Male

DRUGS (1)
  1. REPATHA [Suspect]
     Active Substance: EVOLOCUMAB
     Indication: HYPERLIPIDAEMIA
     Dosage: 140 MG, Q2WK
     Route: 065
     Dates: end: 201607

REACTIONS (4)
  - Scar pain [Not Recovered/Not Resolved]
  - Swelling [Not Recovered/Not Resolved]
  - Itching scar [Not Recovered/Not Resolved]
  - Erythema [Not Recovered/Not Resolved]
